FAERS Safety Report 15630395 (Version 1)
Quarter: 2018Q4

REPORT INFORMATION
  Report Type: Report from Study
  Country: None (occurrence: AU)
  Receive Date: 20181118
  Receipt Date: 20181118
  Transmission Date: 20190205
  Serious: Yes (Disabling, Other)
  Sender: FDA-Public Use
  Company Number: AU-ABBVIE-18K-008-2554347-00

PATIENT
  Age: 55 Year
  Sex: Female

DRUGS (8)
  1. HUMIRA [Suspect]
     Active Substance: ADALIMUMAB
     Indication: ANKYLOSING SPONDYLITIS
     Route: 058
     Dates: start: 20180515, end: 20181108
  2. PANADEINE FORTE [Concomitant]
     Active Substance: ACETAMINOPHEN\CODEINE PHOSPHATE
     Indication: PRODUCT USED FOR UNKNOWN INDICATION
     Dosage: 2 TABLETS
     Dates: start: 20161012
  3. PREDNISOLONE. [Concomitant]
     Active Substance: PREDNISOLONE
     Indication: HLA-B*27 POSITIVE
     Route: 048
  4. RAMIPRIL. [Concomitant]
     Active Substance: RAMIPRIL
     Indication: HYPERTENSION
     Dates: start: 20180816, end: 20180913
  5. BACTRIM [Concomitant]
     Active Substance: SULFAMETHOXAZOLE\TRIMETHOPRIM
     Indication: ANTIFUNGAL PROPHYLAXIS
     Dates: start: 20180913
  6. SULFAMETHOXAZOLE W/TRIMIPRAMINE [Concomitant]
     Indication: SLEEP APNOEA SYNDROME
     Dosage: 800/160MG
     Dates: start: 20180913
  7. PREDNISOLONE. [Concomitant]
     Active Substance: PREDNISOLONE
     Indication: ANKYLOSING SPONDYLITIS
     Route: 048
     Dates: start: 20180913
  8. RAMIPRIL. [Concomitant]
     Active Substance: RAMIPRIL
     Indication: PROTEINURIA
     Dates: start: 20180913

REACTIONS (11)
  - Chromaturia [Unknown]
  - Systemic lupus erythematosus [Unknown]
  - Renal impairment [Unknown]
  - Acute kidney injury [Recovering/Resolving]
  - Haematuria [Unknown]
  - Peripheral swelling [Unknown]
  - Proteinuria [Unknown]
  - Urine abnormality [Unknown]
  - Arthralgia [Unknown]
  - Ankylosing spondylitis [Unknown]
  - Lupus nephritis [Unknown]

NARRATIVE: CASE EVENT DATE: 20181108
